FAERS Safety Report 7560456-2 (Version None)
Quarter: 2011Q2

REPORT INFORMATION
  Report Type: 
  Country: None (occurrence: None)
  Receive Date: 20110621
  Receipt Date: 20110614
  Transmission Date: 20111010
  Serious: Yes (Other)
  Sender: FDA-Public Use
  Company Number: US-PFIZER INC-2011132145

PATIENT
  Sex: Male

DRUGS (6)
  1. VIAGRA [Suspect]
     Dosage: UNK
  2. SIMVASTATIN [Suspect]
     Dosage: 20 MG, UNK
  3. CARVEDILOL [Suspect]
     Dosage: 25 MG, 2X/DAY
  4. HYDROCHLOROTHIAZIDE [Suspect]
  5. VALSARTAN [Suspect]
     Dosage: 320 MG AT BEDTIME
  6. ACETYLSALICYLIC ACID [Suspect]
     Dosage: 81 MG, UNK

REACTIONS (1)
  - RENAL FAILURE [None]
